FAERS Safety Report 6507020-1 (Version None)
Quarter: 2009Q4

REPORT INFORMATION
  Report Type: 
  Country: None (occurrence: None)
  Receive Date: 20091127
  Receipt Date: 20090904
  Transmission Date: 20100525
  Serious: Yes (Other)
  Sender: FDA-Public Use
  Company Number: US200909001227

PATIENT
  Age: 59 Year
  Sex: Male

DRUGS (5)
  1. BYETTA [Suspect]
     Indication: TYPE 2 DIABETES MELLITUS
     Dosage: 5 UG, 2/D, SUBCUTANEOUS 10 UG, 2/D, SUBCUTANEOUS
     Route: 058
     Dates: start: 20070101, end: 20070101
  2. BYETTA [Suspect]
     Indication: TYPE 2 DIABETES MELLITUS
     Dosage: 5 UG, 2/D, SUBCUTANEOUS 10 UG, 2/D, SUBCUTANEOUS
     Route: 058
     Dates: start: 20070101
  3. JANUVIA [Concomitant]
  4. HYZAAR [Concomitant]
  5. CARVEDILOL [Concomitant]

REACTIONS (5)
  - DYSPEPSIA [None]
  - KIDNEY MALFORMATION [None]
  - OFF LABEL USE [None]
  - PROTEIN TOTAL INCREASED [None]
  - RENAL FAILURE [None]
